FAERS Safety Report 12963499 (Version 1)
Quarter: 2016Q4

REPORT INFORMATION
  Report Type: Report from Study
  Country: CA (occurrence: CA)
  Receive Date: 20161122
  Receipt Date: 20161122
  Transmission Date: 20170207
  Serious: Yes (Other)
  Sender: FDA-Public Use
  Company Number: CA-AMGEN-CANSL2016161725

PATIENT
  Age: 67 Year
  Sex: Female

DRUGS (4)
  1. PROLIA [Suspect]
     Active Substance: DENOSUMAB
     Indication: PRODUCT USED FOR UNKNOWN INDICATION
     Dosage: UNK
     Route: 065
     Dates: start: 20160428
  2. FOLIC ACID. [Concomitant]
     Active Substance: FOLIC ACID
  3. HEPARIN [Concomitant]
     Active Substance: HEPARIN SODIUM
  4. PLAVIX [Concomitant]
     Active Substance: CLOPIDOGREL BISULFATE
     Indication: DEEP VEIN THROMBOSIS

REACTIONS (15)
  - Muscle spasms [Unknown]
  - Arthropathy [Unknown]
  - Alopecia [Unknown]
  - Back pain [Unknown]
  - Pain in extremity [Unknown]
  - Back injury [Unknown]
  - Grip strength decreased [Unknown]
  - Denture wearer [Unknown]
  - Urinary incontinence [Unknown]
  - Drug dose omission [Unknown]
  - Pain in jaw [Unknown]
  - Joint swelling [Unknown]
  - Lactose intolerance [Unknown]
  - Peripheral swelling [Unknown]
  - Upper limb fracture [Unknown]

NARRATIVE: CASE EVENT DATE: 201605
